FAERS Safety Report 21566491 (Version 1)
Quarter: 2022Q4

REPORT INFORMATION
  Report Type: Spontaneous
  Country: US (occurrence: US)
  Receive Date: 20221108
  Receipt Date: 20221108
  Transmission Date: 20230112
  Serious: No
  Sender: FDA-Public Use
  Company Number: US-LEO Pharma-346644

PATIENT
  Sex: Female

DRUGS (1)
  1. ADBRY [Suspect]
     Active Substance: TRALOKINUMAB-LDRM
     Indication: Dermatitis atopic
     Dosage: DOSAGE : 4 SYRINGES ON DAY ONE THEN AT 2 SYRINGES EVERY TWO WEEKS STARTING ON DAY 15
     Route: 058
     Dates: start: 202208

REACTIONS (2)
  - Swelling [Recovering/Resolving]
  - Rash macular [Recovering/Resolving]
